FAERS Safety Report 4594424-X (Version None)
Quarter: 2005Q1

REPORT INFORMATION
  Report Type: 
  Country: None (occurrence: None)
  Receive Date: 20050301
  Receipt Date: 20040123
  Transmission Date: 20050727
  Serious: No
  Sender: FDA-Public Use
  Company Number: S2004US00636

PATIENT
  Sex: Female

DRUGS (1)
  1. VALTREX [Suspect]
     Route: 048

REACTIONS (4)
  - DRUG INEFFECTIVE [None]
  - HERPES SIMPLEX [None]
  - ILL-DEFINED DISORDER [None]
  - PRURITUS [None]
